FAERS Safety Report 6715420-X (Version None)
Quarter: 2010Q2

REPORT INFORMATION
  Report Type: 
  Country: None (occurrence: None)
  Receive Date: 20100507
  Receipt Date: 20100428
  Transmission Date: 20101027
  Serious: Yes (Hospitalization)
  Sender: FDA-Public Use
  Company Number: US-JNJFOC-20100500068

PATIENT
  Age: 79 Year
  Sex: Female
  Weight: 46.72 kg

DRUGS (4)
  1. NUCYNTA [Suspect]
     Indication: BACK PAIN
     Dosage: 1 TABLET UP TO 3 TIMES A DAY
     Route: 048
  2. STEROID INJECTION NOS [Suspect]
     Indication: BACK PAIN
     Route: 008
  3. BISOPROLOL [Concomitant]
     Indication: HYPERTENSION
     Route: 048
  4. ISOSORBIDE [Concomitant]
     Indication: CARDIAC DISORDER
     Route: 048

REACTIONS (3)
  - BLOOD PRESSURE INCREASED [None]
  - DIZZINESS [None]
  - THERAPEUTIC RESPONSE INCREASED [None]
